FAERS Safety Report 22208908 (Version 1)
Quarter: 2023Q2

REPORT INFORMATION
  Report Type: Spontaneous
  Country: US (occurrence: US)
  Receive Date: 20230413
  Receipt Date: 20230413
  Transmission Date: 20230722
  Serious: No
  Sender: FDA-Public Use
  Company Number: US-Calliditas-2023CAL00354

PATIENT
  Age: 26 Year
  Sex: Female

DRUGS (1)
  1. TARPEYO [Suspect]
     Active Substance: BUDESONIDE
     Indication: IgA nephropathy
     Dosage: 16 MG (4 MG CAPSULES) ONCE DAILY
     Route: 048
     Dates: start: 20230323

REACTIONS (4)
  - Hypertension [Unknown]
  - Intentional dose omission [Recovered/Resolved]
  - Abdominal pain upper [Unknown]
  - Insomnia [Unknown]

NARRATIVE: CASE EVENT DATE: 20230323
